FAERS Safety Report 5594900-7 (Version None)
Quarter: 2008Q1

REPORT INFORMATION
  Report Type: 
  Country: None (occurrence: None)
  Receive Date: 20080117
  Receipt Date: 20080111
  Transmission Date: 20080703
  Serious: Yes (Other)
  Sender: FDA-Public Use
  Company Number: US-BRACCO-BDI-009432

PATIENT
  Age: 43 Year
  Sex: Female

DRUGS (4)
  1. MULTIHANCE [Suspect]
     Indication: DILATATION VENTRICULAR
     Route: 042
     Dates: start: 20070420, end: 20070420
  2. MULTIHANCE [Suspect]
     Indication: NUCLEAR MAGNETIC RESONANCE IMAGING
     Route: 042
     Dates: start: 20070420, end: 20070420
  3. MULTIHANCE [Suspect]
     Indication: PALPITATIONS
     Route: 042
     Dates: start: 20070420, end: 20070420
  4. OXYGEN [Concomitant]
     Route: 055
     Dates: start: 20070420

REACTIONS (5)
  - BLOOD GLUCOSE INCREASED [None]
  - EYE DISORDER [None]
  - OXYGEN SATURATION DECREASED [None]
  - UNRESPONSIVE TO STIMULI [None]
  - VOMITING [None]
